FAERS Safety Report 5203240-7 (Version None)
Quarter: 2006Q4

REPORT INFORMATION
  Report Type: 
  Country: None (occurrence: None)
  Receive Date: 20061016
  Receipt Date: 20060405
  Transmission Date: 20070319
  Serious: Yes (Hospitalization, Other)
  Sender: FDA-Public Use
  Company Number: 2006031744

PATIENT
  Age: 33 Year
  Sex: Female

DRUGS (7)
  1. NEURONTIN [Suspect]
     Indication: ILL-DEFINED DISORDER
  2. BUSPAR [Concomitant]
  3. EFFEXOR XR [Concomitant]
  4. XANAX [Concomitant]
  5. ATARAX [Concomitant]
  6. DURAGESIC-100 [Concomitant]
  7. LOPRESSOR [Concomitant]

REACTIONS (1)
  - SUICIDAL IDEATION [None]
